FAERS Safety Report 5873158-5 (Version None)
Quarter: 2008Q3

REPORT INFORMATION
  Report Type: 
  Country: None (occurrence: None)
  Receive Date: 20080908
  Receipt Date: 20080806
  Transmission Date: 20090109
  Serious: No
  Sender: FDA-Public Use
  Company Number: US-BAYER-200826980NA

PATIENT
  Age: 53 Year
  Sex: Female

DRUGS (10)
  1. AVELOX [Suspect]
     Indication: SINUSITIS
     Route: 048
     Dates: start: 20080415, end: 20080419
  2. RESTASIS [Concomitant]
     Dates: start: 20080301, end: 20080501
  3. ZITHROMAX [Concomitant]
  4. AUGMENTIN '125' [Concomitant]
     Dates: start: 20080410
  5. FISH OIL [Concomitant]
  6. GARLIC [Concomitant]
  7. ACIDOPHILUS [Concomitant]
  8. METHYLPREDNISOLONE [Concomitant]
  9. BIAXIN [Concomitant]
  10. NYSTATIN [Concomitant]

REACTIONS (5)
  - DYSGEUSIA [None]
  - FACE OEDEMA [None]
  - FACIAL PAIN [None]
  - HYPOAESTHESIA FACIAL [None]
  - PAIN IN JAW [None]
